FAERS Safety Report 7540877-4 (Version None)
Quarter: 2011Q2

REPORT INFORMATION
  Report Type: 
  Country: None (occurrence: None)
  Receive Date: 20110610
  Receipt Date: 20110609
  Transmission Date: 20111010
  Serious: Yes (Hospitalization)
  Sender: FDA-Public Use
  Company Number: US-UCBSA-034764

PATIENT
  Sex: Female

DRUGS (4)
  1. OSCAL [Concomitant]
  2. PREDNISONE [Concomitant]
  3. LISINOPRIL [Concomitant]
  4. CIMZIA [Suspect]
     Indication: RHEUMATOID ARTHRITIS
     Dates: start: 20110426

REACTIONS (2)
  - COLITIS [None]
  - BLOOD POTASSIUM DECREASED [None]
